FAERS Safety Report 7374631-3 (Version None)
Quarter: 2011Q1

REPORT INFORMATION
  Report Type: 
  Country: None (occurrence: None)
  Receive Date: 20110325
  Receipt Date: 20100521
  Transmission Date: 20110831
  Serious: No
  Sender: FDA-Public Use
  Company Number: US-MYLANLABS-2010S1009020

PATIENT
  Age: 78 Year
  Sex: Female

DRUGS (2)
  1. FENTANYL-100 [Suspect]
     Indication: FIBROMYALGIA
     Dosage: CHANGES PATCHES Q 72 HOURS
     Route: 062
     Dates: start: 20100507
  2. FENTANYL-100 [Suspect]
     Indication: NEUROPATHY PERIPHERAL
     Dosage: CHANGES PATCHES Q 72 HOURS
     Route: 062
     Dates: start: 20100507

REACTIONS (1)
  - ALOPECIA [None]
